FAERS Safety Report 17430473 (Version 2)
Quarter: 2020Q1

REPORT INFORMATION
  Report Type: Spontaneous
  Country: HR (occurrence: HR)
  Receive Date: 20200218
  Receipt Date: 20200227
  Transmission Date: 20200409
  Serious: Yes (Other)
  Sender: FDA-Public Use
  Company Number: HR-US-PROVELL PHARMACEUTICALS LLC-E2B_90074986

PATIENT
  Age: 43 Year
  Sex: Female
  Weight: 68 kg

DRUGS (6)
  1. EUTHYROX [Suspect]
     Active Substance: LEVOTHYROXINE SODIUM
     Dosage: DAILY DOSE 75
     Route: 048
     Dates: start: 20191201
  2. XANAX [Concomitant]
     Active Substance: ALPRAZOLAM
     Indication: ANXIETY DISORDER
     Dosage: AS NEEDED
     Route: 048
  3. SIOFOR [Concomitant]
     Active Substance: METFORMIN HYDROCHLORIDE
     Indication: DIABETES MELLITUS
     Route: 048
  4. EUTHYROX [Suspect]
     Active Substance: LEVOTHYROXINE SODIUM
     Indication: AUTOIMMUNE THYROIDITIS
     Dosage: ON THE WEEKENDS
     Route: 048
     Dates: start: 20191201
  5. LYRICA [Concomitant]
     Active Substance: PREGABALIN
     Indication: ANXIETY DISORDER
     Dosage: AS NEEDED
     Route: 048
  6. CONTROLOC [Concomitant]
     Active Substance: PANTOPRAZOLE SODIUM
     Indication: PRODUCT USED FOR UNKNOWN INDICATION
     Dosage: IN THE MORNING
     Route: 048

REACTIONS (5)
  - Alopecia [Recovered/Resolved]
  - Weight increased [Recovered/Resolved]
  - Arrhythmia [Recovered/Resolved]
  - Diarrhoea [Recovered/Resolved]
  - Anxiety [Recovered/Resolved]

NARRATIVE: CASE EVENT DATE: 201912
